FAERS Safety Report 9234293 (Version 1)
Quarter: 2013Q2

REPORT INFORMATION
  Report Type: Spontaneous
  Country: BR (occurrence: BR)
  Receive Date: 20130416
  Receipt Date: 20130416
  Transmission Date: 20140414
  Serious: Yes (Hospitalization, Other)
  Sender: FDA-Public Use
  Company Number: PHHY2013BR035989

PATIENT
  Age: 62 Year
  Sex: Male
  Weight: 110 kg

DRUGS (11)
  1. APRESOLIN [Suspect]
     Indication: HYPERTENSION
     Dosage: 1 DF (25MG), DAILY
     Route: 048
     Dates: start: 200911
  2. APRESOLIN [Suspect]
     Dosage: 2 DF (50MG), DAILY
     Route: 048
  3. APRESOLIN [Suspect]
     Dosage: 3 DF (50MG), DAILY
     Route: 048
  4. SIMVASTATIN [Suspect]
     Indication: HYPERTENSION
     Dosage: 1 DF (20MG), DAILY
     Route: 048
  5. MICARDIS [Suspect]
     Indication: HYPERTENSION
     Dosage: 1 DF (50MG), DAILY
     Route: 048
  6. MICARDIS [Suspect]
     Dosage: 1 DF (80MG), DAILY
     Route: 048
  7. SPIRONOLACTONE [Suspect]
     Indication: HYPERTENSION
     Dosage: 1 DF (40MG), DAILY
     Route: 048
  8. CARVEDILOL [Concomitant]
     Indication: CARDIAC DISORDER
     Dosage: 1 DF (25MG), BID
     Route: 048
     Dates: start: 201004
  9. ISOSORBIDE MONONITRATE [Concomitant]
     Indication: CARDIAC DISORDER
     Dosage: 2 DF (25 MG) TID
     Route: 048
     Dates: start: 201004
  10. LASIX [Concomitant]
     Indication: CARDIAC DISORDER
     Dosage: 1 DF (40MG), DAILY
     Route: 048
     Dates: start: 201004
  11. CLOPIDOGREL [Concomitant]
     Indication: CARDIAC DISORDER
     Dosage: 1 DF (75MG), DAILY
     Route: 048
     Dates: start: 201004

REACTIONS (6)
  - Infarction [Not Recovered/Not Resolved]
  - Cardiac disorder [Not Recovered/Not Resolved]
  - Renal impairment [Recovered/Resolved]
  - Blood creatinine increased [Recovered/Resolved]
  - Blood urea increased [Recovered/Resolved]
  - Liver disorder [Recovered/Resolved]
